FAERS Safety Report 15573563 (Version 2)
Quarter: 2018Q4

REPORT INFORMATION
  Report Type: Spontaneous
  Country: US (occurrence: US)
  Receive Date: 20181101
  Receipt Date: 20181219
  Transmission Date: 20190205
  Serious: No
  Sender: FDA-Public Use
  Company Number: US-ASTRAZENECA-2018SF29527

PATIENT
  Age: 27804 Day
  Sex: Female
  Weight: 91.6 kg

DRUGS (4)
  1. BYDUREON BCISE [Suspect]
     Active Substance: EXENATIDE
     Indication: TYPE 2 DIABETES MELLITUS
     Route: 058
     Dates: start: 2018
  2. METFORMIN [Concomitant]
     Active Substance: METFORMIN HYDROCHLORIDE
  3. LANTUS [Concomitant]
     Active Substance: INSULIN GLARGINE
  4. REPATHA [Concomitant]
     Active Substance: EVOLOCUMAB
     Indication: BLOOD TRIGLYCERIDES

REACTIONS (11)
  - Contusion [Unknown]
  - Fall [Unknown]
  - Device malfunction [Unknown]
  - Parkinsonism [Unknown]
  - Cognitive disorder [Unknown]
  - Gait disturbance [Unknown]
  - Muscle spasms [Unknown]
  - Cardiac disorder [Unknown]
  - Fatigue [Unknown]
  - Incorrect dose administered by device [Unknown]
  - Memory impairment [Unknown]

NARRATIVE: CASE EVENT DATE: 20180927
